FAERS Safety Report 13740991 (Version 1)
Quarter: 2017Q3

REPORT INFORMATION
  Report Type: Spontaneous
  Country: None (occurrence: US)
  Receive Date: 20170710
  Receipt Date: 20170710
  Transmission Date: 20171127
  Serious: No
  Sender: FDA-Public Use
  Company Number: None

PATIENT
  Sex: Female

DRUGS (2)
  1. TOBI PODHALER [Suspect]
     Active Substance: TOBRAMYCIN
     Indication: PSEUDOMONAS INFECTION
     Dosage: 4 CAPSULES (112 MG) X2DAILY, 28DS ON/28DS IFF INHALE
     Route: 055
     Dates: start: 20170322
  2. TOBI PODHALER [Suspect]
     Active Substance: TOBRAMYCIN
     Indication: CYSTIC FIBROSIS
     Dosage: 4 CAPSULES (112 MG) X2DAILY, 28DS ON/28DS IFF INHALE
     Route: 055
     Dates: start: 20170322

REACTIONS (1)
  - Cough [None]
